FAERS Safety Report 8538652 (Version 2)
Quarter: 2012Q4

REPORT INFORMATION
  Report Type: Report from Study
  Country: DE (occurrence: DE)
  Receive Date: 20120501
  Receipt Date: 20121029
  Transmission Date: 20130627
  Serious: Yes (Hospitalization, Other)
  Sender: FDA-Public Use
  Company Number: DE-GLAXOSMITHKLINE-B0798562A

PATIENT
  Age: 41 Year
  Sex: Female
  Weight: 63 kg

DRUGS (8)
  1. LAPATINIB [Suspect]
     Indication: BREAST CANCER METASTATIC
     Dosage: 500MG Per day
     Route: 048
     Dates: start: 20120327
  2. PACLITAXEL [Suspect]
     Indication: BREAST CANCER METASTATIC
     Dosage: 104MG Weekly
     Route: 042
     Dates: start: 20120327
  3. MYOCET [Suspect]
     Indication: BREAST CANCER METASTATIC
     Dosage: 26MG Weekly
     Route: 042
     Dates: start: 20120327
  4. CARBOPLATIN [Suspect]
     Indication: BREAST CANCER METASTATIC
     Dosage: 161MG Weekly
     Route: 042
     Dates: start: 20120327
  5. TRASTUZUMAB [Suspect]
     Indication: BREAST CANCER METASTATIC
     Dosage: 378MG Every 3 weeks
     Route: 042
     Dates: start: 20120327
  6. GRANISETRON [Concomitant]
     Dates: start: 20120317
  7. FENISTIL [Concomitant]
     Dates: start: 20120317
  8. LOPERAMIDE [Concomitant]
     Dates: start: 20120317

REACTIONS (1)
  - Embolism [Recovered/Resolved]
